FAERS Safety Report 21026365 (Version 1)
Quarter: 2022Q2

REPORT INFORMATION
  Report Type: Report from Study
  Country: KR (occurrence: KR)
  Receive Date: 20220630
  Receipt Date: 20220630
  Transmission Date: 20220720
  Serious: Yes (Hospitalization)
  Sender: FDA-Public Use
  Company Number: KR-TAKEDA-2022TUS043591

PATIENT
  Age: 43 Year
  Sex: Female
  Weight: 46 kg

DRUGS (19)
  1. VEDOLIZUMAB [Suspect]
     Active Substance: VEDOLIZUMAB
     Indication: Colitis ulcerative
     Dosage: 300 MILLIGRAM
     Route: 042
     Dates: start: 20211004, end: 20211004
  2. VEDOLIZUMAB [Suspect]
     Active Substance: VEDOLIZUMAB
     Dosage: 300 MILLIGRAM
     Route: 042
     Dates: start: 20211018, end: 20211018
  3. VEDOLIZUMAB [Suspect]
     Active Substance: VEDOLIZUMAB
     Dosage: 300 MILLIGRAM
     Route: 042
     Dates: start: 20211115, end: 20211115
  4. VEDOLIZUMAB [Suspect]
     Active Substance: VEDOLIZUMAB
     Dosage: 300 MILLIGRAM
     Route: 042
     Dates: start: 20220110, end: 20220110
  5. VEDOLIZUMAB [Suspect]
     Active Substance: VEDOLIZUMAB
     Dosage: 300 MILLIGRAM
     Route: 042
     Dates: start: 20220307, end: 20220307
  6. VEDOLIZUMAB [Suspect]
     Active Substance: VEDOLIZUMAB
     Dosage: 300 MILLIGRAM
     Route: 042
     Dates: start: 20220404, end: 20220404
  7. VEDOLIZUMAB [Suspect]
     Active Substance: VEDOLIZUMAB
     Dosage: 300 MILLIGRAM
     Route: 042
     Dates: start: 20220502, end: 20220502
  8. GASTER [Concomitant]
     Active Substance: FAMOTIDINE
     Dosage: 20 MILLIGRAM, BID
     Route: 048
     Dates: start: 20210927
  9. RABEPRAZOLE SODIUM [Concomitant]
     Active Substance: RABEPRAZOLE SODIUM
     Indication: Adverse event
     Dosage: 10 MILLIGRAM, BID
     Route: 048
     Dates: start: 20211018
  10. PENTASA [Concomitant]
     Active Substance: MESALAMINE
     Dosage: 2000 MILLIGRAM, BID
     Route: 048
     Dates: start: 20180619
  11. TYLENOL [Concomitant]
     Active Substance: ACETAMINOPHEN
     Indication: Adverse event
     Dosage: 650 MILLIGRAM, TID
     Route: 048
     Dates: start: 20220529, end: 20220604
  12. INFLIXIMAB [Concomitant]
     Active Substance: INFLIXIMAB
     Indication: Adverse event
     Dosage: 200 MILLIGRAM, QD
     Route: 042
     Dates: start: 20220530, end: 20220530
  13. PHENIRAMINE [Concomitant]
     Active Substance: PHENIRAMINE
     Indication: Prophylaxis
     Dosage: 2 MILLILITER, QD
     Route: 042
     Dates: start: 20220530, end: 20220530
  14. DEXTROSE AND SODIUM CHLORIDE [Concomitant]
     Active Substance: DEXTROSE MONOHYDRATE\SODIUM CHLORIDE
     Indication: Adverse event
     Dosage: 500 MILLILITER, QD
     Route: 042
     Dates: start: 20220530, end: 20220530
  15. VITAMINS [Concomitant]
     Active Substance: VITAMINS
     Indication: Adverse event
     Dosage: 5 MILLILITER, QD
     Route: 042
     Dates: start: 20220530, end: 20220530
  16. CAFSOL [Concomitant]
     Indication: Adverse event
     Dosage: 500 MILLILITER, QD
     Route: 042
     Dates: start: 20220530, end: 20220530
  17. LECLEAN [Concomitant]
     Indication: Premedication
     Dosage: 133 MILLILITER, QD
     Route: 054
     Dates: start: 20220530, end: 20220530
  18. FREEFOL MCT [Concomitant]
     Indication: Premedication
     Dosage: 120 MILLIGRAM, QD
     Route: 042
     Dates: start: 20220530, end: 20220530
  19. PELUBI [Concomitant]
     Indication: Adverse event
     Dosage: 30 MILLIGRAM, BID
     Route: 048
     Dates: start: 20220328, end: 202206

REACTIONS (1)
  - Drug ineffective [Recovered/Resolved]

NARRATIVE: CASE EVENT DATE: 20220529
